FAERS Safety Report 19677985 (Version 2)
Quarter: 2022Q1

REPORT INFORMATION
  Report Type: Spontaneous
  Country: AR (occurrence: AR)
  Receive Date: 20210809
  Receipt Date: 20220301
  Transmission Date: 20220423
  Serious: Yes (Other)
  Sender: FDA-Public Use
  Company Number: AR-PFIZER INC-2021534923

PATIENT
  Age: 60 Year
  Sex: Female

DRUGS (3)
  1. XELJANZ XR [Suspect]
     Active Substance: TOFACITINIB CITRATE
     Indication: Rheumatoid arthritis
     Dosage: 11 MG, 1X/DAY
     Dates: start: 20210505, end: 2021
  2. XELJANZ XR [Suspect]
     Active Substance: TOFACITINIB CITRATE
     Dosage: 11 MG, 1X/DAY
     Dates: start: 20210505, end: 2021
  3. RITUXIMAB [Concomitant]
     Active Substance: RITUXIMAB
     Dosage: UNK

REACTIONS (6)
  - Open globe injury [Unknown]
  - Visual impairment [Not Recovered/Not Resolved]
  - Eye irritation [Not Recovered/Not Resolved]
  - Asthenopia [Not Recovered/Not Resolved]
  - Dry eye [Unknown]
  - Ocular discomfort [Unknown]
